FAERS Safety Report 5422373-3 (Version None)
Quarter: 2007Q3

REPORT INFORMATION
  Report Type: 
  Country: None (occurrence: None)
  Receive Date: 20070820
  Receipt Date: 20070808
  Transmission Date: 20080115
  Serious: Yes (Hospitalization)
  Sender: FDA-Public Use
  Company Number: 2007VX002094

PATIENT
  Age: 49 Year
  Sex: Female

DRUGS (7)
  1. MESTINON [Suspect]
     Dosage: 300 MG; QD; PO
     Route: 048
     Dates: start: 20050101
  2. ARIPIPRAZOLE [Suspect]
     Indication: PSYCHOTIC DISORDER
     Dosage: 15 MG; ; PO
     Route: 048
     Dates: start: 20050101, end: 20060601
  3. FLUVOXAMINE MALEATE [Suspect]
     Dosage: 100 MG;
     Dates: start: 20050101
  4. TERCIAN (CYAMEMAZINE) [Suspect]
     Dosage: 25 MG;
     Dates: start: 20050101
  5. MEPRONIZINE (MEPRONIZINE) [Suspect]
     Dates: start: 20061201
  6. THERALENE (ALIMEMAZINE TARTRATE) [Suspect]
     Dates: start: 20060101
  7. TRANXENE [Suspect]
     Dosage: 5 MG;

REACTIONS (4)
  - AKATHISIA [None]
  - ANXIETY [None]
  - DELIRIUM [None]
  - PERSECUTORY DELUSION [None]
